FAERS Safety Report 6986591-5 (Version None)
Quarter: 2010Q3

REPORT INFORMATION
  Report Type: 
  Country: None (occurrence: None)
  Receive Date: 20100915
  Receipt Date: 20090827
  Transmission Date: 20110219
  Serious: No
  Sender: FDA-Public Use
  Company Number: US-WYE-H10249509

PATIENT
  Sex: Female
  Weight: 59.02 kg

DRUGS (4)
  1. PRISTIQ [Suspect]
     Indication: DEPRESSION
     Route: 048
     Dates: start: 20090708
  2. ZIAC [Concomitant]
     Dosage: DOSE UNKNOWN, DAILY
     Route: 048
  3. PAXIL [Concomitant]
     Dosage: DOSE UNKNOWN, EVERY 3RD DAY
     Route: 048
  4. ZOCOR [Concomitant]
     Dosage: DOSE UNKNOWN, DAILY
     Route: 048

REACTIONS (4)
  - ENERGY INCREASED [None]
  - PERSONALITY CHANGE [None]
  - SOMNOLENCE [None]
  - THERAPEUTIC RESPONSE UNEXPECTED [None]
